FAERS Safety Report 5678042-8 (Version None)
Quarter: 2008Q1

REPORT INFORMATION
  Report Type: 
  Country: None (occurrence: None)
  Receive Date: 20080324
  Receipt Date: 20080324
  Transmission Date: 20080703
  Serious: Yes (Other)
  Sender: FDA-Public Use
  Company Number: None

PATIENT
  Age: 54 Year
  Sex: Male
  Weight: 99.7913 kg

DRUGS (1)
  1. BLOOD UNKNOWN UNKNOWN [Suspect]
     Dosage: SMALL AMOUNT ONCE PO  ONE TIME EXPOSURE
     Route: 048
     Dates: start: 20080301, end: 20080302

REACTIONS (1)
  - ACCIDENTAL EXPOSURE [None]
